FAERS Safety Report 5570005-6 (Version None)
Quarter: 2007Q4

REPORT INFORMATION
  Report Type: 
  Country: None (occurrence: None)
  Receive Date: 20071218
  Receipt Date: 20071205
  Transmission Date: 20080405
  Serious: Yes (Hospitalization)
  Sender: FDA-Public Use
  Company Number: GXKR2007IE10474

PATIENT
  Age: 60 Year
  Sex: Male

DRUGS (3)
  1. HEPARIN [Suspect]
     Indication: PREOPERATIVE CARE
     Dosage: INFUSION
  2. WARFARIN SODIUM [Suspect]
     Indication: DEEP VEIN THROMBOSIS
  3. ANTICOAGULANTS (ANTICOAGULANTS) [Concomitant]

REACTIONS (15)
  - ANAEMIA [None]
  - ANTITHROMBIN III DECREASED [None]
  - COAGULATION FACTOR VII LEVEL DECREASED [None]
  - COAGULATION FACTOR X LEVEL DECREASED [None]
  - DEEP VEIN THROMBOSIS [None]
  - DISEASE RECURRENCE [None]
  - FACTOR IX DEFICIENCY [None]
  - GANGRENE [None]
  - HAEMATURIA [None]
  - INTERNATIONAL NORMALISED RATIO DECREASED [None]
  - LEG AMPUTATION [None]
  - PROTEIN C DECREASED [None]
  - PROTEIN S ABNORMAL [None]
  - PROTHROMBIN LEVEL DECREASED [None]
  - RENAL CELL CARCINOMA STAGE UNSPECIFIED [None]
